FAERS Safety Report 20696737 (Version 3)
Quarter: 2022Q2

REPORT INFORMATION
  Report Type: Other
  Country: US (occurrence: None)
  Receive Date: 20220411
  Receipt Date: 20220429
  Transmission Date: 20220721
  Serious: Yes (Death)
  Sender: FDA-Public Use
  Company Number: US-ROCHE-3068049

PATIENT
  Age: 66 Year
  Sex: Male

DRUGS (2)
  1. ACTEMRA [Suspect]
     Active Substance: TOCILIZUMAB
     Indication: SARS-CoV-2 test positive
     Route: 042
  2. ACTEMRA [Suspect]
     Active Substance: TOCILIZUMAB
     Route: 042
     Dates: end: 20220201

REACTIONS (5)
  - COVID-19 pneumonia [Fatal]
  - Pulmonary embolism [Fatal]
  - Cerebrovascular accident [Fatal]
  - Atrial fibrillation [Fatal]
  - Off label use [Unknown]

NARRATIVE: CASE EVENT DATE: 20220201
